FAERS Safety Report 23731930 (Version 1)
Quarter: 2024Q2

REPORT INFORMATION
  Report Type: Spontaneous
  Country: US (occurrence: US)
  Receive Date: 20240411
  Receipt Date: 20240411
  Transmission Date: 20240716
  Serious: No
  Sender: FDA-Public Use
  Company Number: US-SPECGX-T202301934

PATIENT
  Age: 93 Year
  Sex: Female
  Weight: 71 kg

DRUGS (2)
  1. RESTORIL [Suspect]
     Active Substance: TEMAZEPAM
     Indication: Insomnia
     Dosage: 30 MILLIGRAM, QD
     Route: 065
  2. RESTORIL [Suspect]
     Active Substance: TEMAZEPAM
     Dosage: 30 MILLIGRAM, QD
     Route: 065
     Dates: start: 202309

REACTIONS (2)
  - Suspected product quality issue [Unknown]
  - Drug ineffective [Unknown]

NARRATIVE: CASE EVENT DATE: 20230914
